FAERS Safety Report 23460481 (Version 1)
Quarter: 2024Q1

REPORT INFORMATION
  Report Type: Spontaneous
  Country: FR (occurrence: FR)
  Receive Date: 20240131
  Receipt Date: 20240131
  Transmission Date: 20240409
  Serious: Yes (Other)
  Sender: FDA-Public Use
  Company Number: None

PATIENT
  Age: 80 Year
  Sex: Female
  Weight: 52 kg

DRUGS (10)
  1. ARIPIPRAZOLE [Suspect]
     Active Substance: ARIPIPRAZOLE
     Indication: Product used for unknown indication
     Dosage: 1-1-0
  2. ESOMEPRAZOLE [Suspect]
     Active Substance: ESOMEPRAZOLE
     Indication: Product used for unknown indication
     Dosage: 1-0-0
     Dates: end: 202302
  3. VORTIOXETINE [Suspect]
     Active Substance: VORTIOXETINE
     Indication: Product used for unknown indication
     Dosage: 0-1-0
     Dates: end: 202302
  4. CHOLECALCIFEROL [Concomitant]
     Active Substance: CHOLECALCIFEROL
     Dosage: 50,000 IU/MONTH
  5. EBASTINE [Concomitant]
     Active Substance: EBASTINE
     Dosage: 0-0-1
  6. SPIRIVA [Concomitant]
     Active Substance: TIOTROPIUM BROMIDE MONOHYDRATE
     Dosage: 1-0-0, POWDER FOR INHALATION IN CAPSULE
  7. NASONEX [Concomitant]
     Active Substance: MOMETASONE FUROATE
     Dosage: 1-0-1
  8. LYSINE ACETYLSALICYLATE [Concomitant]
     Active Substance: ASPIRIN DL-LYSINE
     Dosage: 0-1-0,  POWDER FOR ORAL SOLUTION IN SACHET
  9. ACETAMINOPHEN [Concomitant]
     Active Substance: ACETAMINOPHEN
     Dosage: 1-1-1
  10. FOLIC ACID [Concomitant]
     Active Substance: FOLIC ACID
     Dosage: 1-0-0

REACTIONS (1)
  - Inappropriate antidiuretic hormone secretion [Recovered/Resolved]

NARRATIVE: CASE EVENT DATE: 20230210
